FAERS Safety Report 7163895-7 (Version None)
Quarter: 2010Q4

REPORT INFORMATION
  Report Type: 
  Country: None (occurrence: None)
  Receive Date: 20101215
  Receipt Date: 20100702
  Transmission Date: 20110411
  Serious: Yes (Other)
  Sender: FDA-Public Use
  Company Number: GB-PFIZER INC-2010082794

PATIENT
  Age: 58 Year
  Sex: Male
  Weight: 83.5 kg

DRUGS (8)
  1. PREGABALIN [Suspect]
     Indication: GENERALISED ANXIETY DISORDER
     Dosage: 50 MG, 3X/DAY
     Route: 048
     Dates: start: 20100607, end: 20100610
  2. CLOZAPINE [Concomitant]
     Dosage: UNK
  3. DIAZEPAM [Concomitant]
     Dosage: UNK
  4. METFORMIN HYDROCHLORIDE [Concomitant]
     Dosage: UNK
  5. PAROXETINE [Concomitant]
     Dosage: UNK
  6. PROPRANOLOL [Concomitant]
     Dosage: UNK
  7. RANITIDINE HYDROCHLORIDE [Concomitant]
     Dosage: UNK
  8. SIMVASTATIN [Concomitant]
     Dosage: UNK

REACTIONS (5)
  - ASTHENIA [None]
  - COORDINATION ABNORMAL [None]
  - DYSKINESIA [None]
  - DYSPHAGIA [None]
  - FALL [None]
